FAERS Safety Report 22606085 (Version 1)
Quarter: 2023Q2

REPORT INFORMATION
  Report Type: Spontaneous
  Country: US (occurrence: None)
  Receive Date: 20230614
  Receipt Date: 20230614
  Transmission Date: 20230721
  Serious: Yes (Death)
  Sender: FDA-Public Use
  Company Number: None

PATIENT
  Sex: Male

DRUGS (25)
  1. LENALIDOMIDE [Suspect]
     Active Substance: LENALIDOMIDE
     Indication: Plasma cell myeloma
     Dosage: OTHER FREQUENCY : 21 D ON 7 D OFF;?
     Route: 048
  2. ELIQUIS [Concomitant]
     Active Substance: APIXABAN
  3. ACYCLOVIR [Concomitant]
     Active Substance: ACYCLOVIR
  4. AMIODARONE [Concomitant]
     Active Substance: AMIODARONE
  5. AMLODIPINE [Concomitant]
     Active Substance: AMLODIPINE BESYLATE
  6. ALBUTEROL [Concomitant]
     Active Substance: ALBUTEROL
  7. ATORVASTATIN [Concomitant]
     Active Substance: ATORVASTATIN
  8. BACTRIM [Concomitant]
     Active Substance: SULFAMETHOXAZOLE\TRIMETHOPRIM
  9. DEXAMETHASONE [Concomitant]
     Active Substance: DEXAMETHASONE
  10. DORZOLAMIDE [Concomitant]
     Active Substance: DORZOLAMIDE
  11. FAMOTIDINE [Concomitant]
     Active Substance: FAMOTIDINE
  12. FINASTERIDE [Concomitant]
     Active Substance: FINASTERIDE
  13. FOLIC ACID [Concomitant]
     Active Substance: FOLIC ACID
  14. GABAPENTIN [Concomitant]
     Active Substance: GABAPENTIN
  15. ISOSORBIDE [Concomitant]
     Active Substance: ISOSORBIDE
  16. HYDRALAZINE [Concomitant]
     Active Substance: HYDRALAZINE HYDROCHLORIDE
  17. JARDIANCE [Concomitant]
     Active Substance: EMPAGLIFLOZIN
  18. LATANOPROST [Concomitant]
     Active Substance: LATANOPROST
  19. LEFLUNOMIDE [Concomitant]
     Active Substance: LEFLUNOMIDE
  20. METOPROLOL [Concomitant]
     Active Substance: METOPROLOL
  21. PREDNISOLONE [Concomitant]
     Active Substance: PREDNISOLONE
  22. TAMSULOSIN [Concomitant]
     Active Substance: TAMSULOSIN
  23. TORSEMIDE [Concomitant]
     Active Substance: TORSEMIDE
  24. VITAIN B-12 [Concomitant]
  25. CALCIUM [Concomitant]
     Active Substance: CALCIUM

REACTIONS (1)
  - Death [None]
